FAERS Safety Report 11558704 (Version 2)
Quarter: 2015Q4

REPORT INFORMATION
  Report Type: Other
  Country: JP (occurrence: JP)
  Receive Date: 20150928
  Receipt Date: 20151208
  Transmission Date: 20160304
  Serious: Yes (Hospitalization)
  Sender: FDA-Public Use
  Company Number: JP-LUPIN PHARMACEUTICALS INC.-2015-02632

PATIENT
  Age: 41 Year
  Sex: Female
  Weight: 48.7 kg

DRUGS (10)
  1. NEXIUM [Concomitant]
     Active Substance: ESOMEPRAZOLE MAGNESIUM
     Indication: GASTROOESOPHAGEAL REFLUX DISEASE
     Route: 048
     Dates: start: 20140508, end: 20140530
  2. MINEBASE [Concomitant]
     Indication: SINUSITIS
     Route: 048
     Dates: start: 20140407, end: 20140621
  3. OMEPRAZOLE 20MG ^AMEL^ [Suspect]
     Active Substance: OMEPRAZOLE
     Indication: GASTROOESOPHAGEAL REFLUX DISEASE
     Route: 048
     Dates: start: 20140407, end: 20140505
  4. TSUMURA OPHIOPOGONIS TUBER [Concomitant]
     Indication: COUGH
     Route: 048
     Dates: start: 20140407, end: 20140606
  5. SINGULAIR [Concomitant]
     Active Substance: MONTELUKAST SODIUM
     Indication: COUGH
     Route: 048
     Dates: start: 20140407, end: 20140606
  6. DIHYDROCODEINE PHOSPHATE [Concomitant]
     Active Substance: DIHYDROCODEINE PHOSPHATE
     Indication: COUGH
     Route: 048
     Dates: start: 20140407, end: 20140505
  7. SINGULAIR [Concomitant]
     Active Substance: MONTELUKAST SODIUM
     Indication: ASTHMA
  8. MAGNESIUM OXIDE. [Concomitant]
     Active Substance: MAGNESIUM OXIDE
     Indication: CONSTIPATION
     Route: 048
     Dates: start: 20140407, end: 20140505
  9. TSUMURA OPHIOPOGONIS TUBER [Concomitant]
     Indication: ASTHMA
  10. DIHYDROCODEINE PHOSPHATE [Concomitant]
     Active Substance: DIHYDROCODEINE PHOSPHATE
     Indication: ASTHMA

REACTIONS (1)
  - Renal impairment [Unknown]

NARRATIVE: CASE EVENT DATE: 20140515
